FAERS Safety Report 4443365-7 (Version None)
Quarter: 2004Q3

REPORT INFORMATION
  Report Type: 
  Country: None (occurrence: None)
  Receive Date: 20040907
  Receipt Date: 20040907
  Transmission Date: 20050211
  Serious: No
  Sender: FDA-Public Use
  Company Number: None

PATIENT
  Age: 60 Year
  Sex: Male
  Weight: 71.4 kg

DRUGS (13)
  1. CLOPIDOGREL BISULFATE [Suspect]
  2. ISOSORBIDE DINITRATE [Concomitant]
  3. LISINOPRIL [Concomitant]
  4. FUROSEMIDE [Concomitant]
  5. FELODIPINE [Concomitant]
  6. ALBUTEROL [Concomitant]
  7. NITROGLYCERIN [Concomitant]
  8. OMEPRAZOLE [Concomitant]
  9. GUAIFENESIN DM [Concomitant]
  10. ASPIRIN [Concomitant]
  11. DIPHENHYDRAMINE HCL [Concomitant]
  12. SIMVASTATIN [Concomitant]
  13. METHYLPREDNISOLONE SODIUM SUCCINATE [Concomitant]

REACTIONS (3)
  - DYSPNOEA [None]
  - HYPERSENSITIVITY [None]
  - URTICARIA [None]
